FAERS Safety Report 8513144-X (Version None)
Quarter: 2012Q3

REPORT INFORMATION
  Report Type: 
  Country: None (occurrence: None)
  Receive Date: 20120716
  Receipt Date: 20120702
  Transmission Date: 20120928
  Serious: No
  Sender: FDA-Public Use
  Company Number: US-ASTRAZENECA-2012SE45003

PATIENT
  Age: 54 Year
  Sex: Female
  Weight: 55.3 kg

DRUGS (9)
  1. CYMBALTA [Concomitant]
  2. DURAGESIC-100 [Suspect]
     Route: 065
  3. ALLEGRA [Concomitant]
  4. SEROQUEL [Suspect]
     Indication: ANXIETY
     Route: 048
  5. FUROSEMIDE [Concomitant]
  6. ANOTHER MEDICATION [Concomitant]
  7. NEXIUM [Suspect]
     Indication: GASTROOESOPHAGEAL REFLUX DISEASE
     Route: 048
     Dates: start: 20040101, end: 20120101
  8. TOPAMAX [Concomitant]
  9. POTASSIUM CHLORIDE [Concomitant]

REACTIONS (6)
  - MALAISE [None]
  - FALL [None]
  - DRUG INEFFECTIVE [None]
  - OFF LABEL USE [None]
  - WEIGHT DECREASED [None]
  - COUGH [None]
